FAERS Safety Report 7126154-4 (Version None)
Quarter: 2010Q4

REPORT INFORMATION
  Report Type: 
  Country: None (occurrence: None)
  Receive Date: 20101129
  Receipt Date: 20101116
  Transmission Date: 20110411
  Serious: Yes (Hospitalization, Other)
  Sender: FDA-Public Use
  Company Number: US-JNJFOC-20071108911

PATIENT
  Sex: Female
  Weight: 190.51 kg

DRUGS (17)
  1. RISPERDAL [Suspect]
     Indication: COGNITIVE DISORDER
     Route: 048
  2. RISPERDAL [Suspect]
     Indication: FATIGUE
     Route: 048
  3. RISPERDAL [Suspect]
     Indication: DEPRESSION
     Route: 048
  4. PROVIGIL [Suspect]
     Indication: FATIGUE
     Route: 048
  5. PROVIGIL [Suspect]
     Indication: COGNITIVE DISORDER
     Route: 048
  6. ZYPREXA [Suspect]
     Indication: PRODUCT USED FOR UNKNOWN INDICATION
     Route: 065
  7. EFFEXOR XR [Concomitant]
     Indication: DEPRESSION
     Route: 048
  8. EFFEXOR XR [Concomitant]
     Indication: AFFECTIVE DISORDER
     Route: 048
  9. LITHIUM CARBONATE [Concomitant]
     Indication: AFFECTIVE DISORDER
     Route: 048
  10. PRILOSEC [Concomitant]
     Indication: GASTROOESOPHAGEAL REFLUX DISEASE
     Route: 048
  11. ENABLEX [Concomitant]
     Indication: URINARY INCONTINENCE
     Route: 048
  12. LIPITOR [Concomitant]
     Indication: BLOOD CHOLESTEROL INCREASED
     Route: 048
  13. TRIAMTERENE [Concomitant]
     Indication: DIURETIC THERAPY
     Dosage: 37.5/ 25MG EVERY DAY
     Route: 048
  14. TRIAMTERENE [Concomitant]
     Indication: HYPERTENSION
     Dosage: 37.5/ 25MG EVERY DAY
     Route: 048
  15. MIRAPEX [Concomitant]
     Indication: RESTLESS LEGS SYNDROME
     Route: 048
  16. POTASSIUM CHLORIDE [Concomitant]
     Indication: SUPPLEMENTATION THERAPY
     Route: 048
  17. COUMADIN [Concomitant]
     Indication: THROMBOSIS PROPHYLAXIS
     Route: 048

REACTIONS (9)
  - ANAEMIA [None]
  - DYSPHAGIA [None]
  - IMPAIRED GASTRIC EMPTYING [None]
  - MIGRAINE WITH AURA [None]
  - ORAL DISORDER [None]
  - RESPIRATORY RATE INCREASED [None]
  - STOMATITIS [None]
  - TARDIVE DYSKINESIA [None]
  - TREMOR [None]
